FAERS Safety Report 22629259 (Version 1)
Quarter: 2023Q2

REPORT INFORMATION
  Report Type: Spontaneous
  Country: US (occurrence: None)
  Receive Date: 20230619
  Receipt Date: 20230619
  Transmission Date: 20230722
  Serious: No
  Sender: FDA-Public Use
  Company Number: None

PATIENT
  Sex: Female

DRUGS (22)
  1. KISQALI [Suspect]
     Active Substance: RIBOCICLIB
     Indication: Metastasis
     Dosage: OTHER FREQUENCY : 3 W ON 1 W OFF;?
     Route: 048
  2. ACYCLOVIR [Concomitant]
     Active Substance: ACYCLOVIR
  3. AMLODIPINE [Concomitant]
     Active Substance: AMLODIPINE BESYLATE
  4. ASPIRIN [Concomitant]
     Active Substance: ASPIRIN
  5. BENADRYL [Concomitant]
     Active Substance: DIPHENHYDRAMINE HYDROCHLORIDE
  6. BETAMETHASONE [Concomitant]
     Active Substance: BETAMETHASONE
  7. CLARITIN [Concomitant]
     Active Substance: LORATADINE
  8. COENZYME Q10 [Concomitant]
     Active Substance: DIETARY SUPPLEMENT\UBIDECARENONE
  9. OMEGA 3 [Concomitant]
     Active Substance: CAPSAICIN
  10. EXEMESTANE [Concomitant]
     Active Substance: EXEMESTANE
  11. GABAPENTIN [Concomitant]
     Active Substance: GABAPENTIN
  12. LETROZOLE [Concomitant]
     Active Substance: LETROZOLE
  13. LEVOTHYROXINE [Concomitant]
     Active Substance: LEVOTHYROXINE
  14. LUTEIN [Concomitant]
     Active Substance: LUTEIN
  15. LYSINE [Concomitant]
     Active Substance: LYSINE
  16. MAGNESIUM [Concomitant]
     Active Substance: MAGNESIUM
  17. METOPROLOL [Concomitant]
     Active Substance: METOPROLOL
  18. SIMETHICONE (DIMETHICONE) [Concomitant]
     Active Substance: DIMETHICONE
  19. SIMVASTATIN [Concomitant]
     Active Substance: SIMVASTATIN
  20. VITAMIN B12 [Concomitant]
     Active Substance: CYANOCOBALAMIN
  21. VITAMIN C [Concomitant]
     Active Substance: ASCORBIC ACID
  22. VITAMIN D [Concomitant]
     Active Substance: VITAMIN D NOS

REACTIONS (2)
  - Arthritis [None]
  - Anaemia [None]
